FAERS Safety Report 24996477 (Version 2)
Quarter: 2025Q1

REPORT INFORMATION
  Report Type: Report from Study
  Country: CA (occurrence: CA)
  Receive Date: 20250221
  Receipt Date: 20250307
  Transmission Date: 20250409
  Serious: Yes (Other)
  Sender: TAKEDA
  Company Number: CA-TAKEDA-2024TUS112460

PATIENT
  Sex: Male

DRUGS (8)
  1. VEDOLIZUMAB [Suspect]
     Active Substance: VEDOLIZUMAB
     Indication: Colitis ulcerative
  2. VEDOLIZUMAB [Suspect]
     Active Substance: VEDOLIZUMAB
     Indication: Colitis ulcerative
     Dosage: 108 MILLIGRAM, Q2WEEKS
     Dates: start: 20250203
  3. IRON [Concomitant]
     Active Substance: IRON
     Indication: Supplementation therapy
  4. CANDESARTAN [Concomitant]
     Active Substance: CANDESARTAN
  5. AMLODIPINE [Concomitant]
     Active Substance: AMLODIPINE BESYLATE
  6. BISOPROLOL [Concomitant]
     Active Substance: BISOPROLOL
  7. TYLENOL [Concomitant]
     Active Substance: ACETAMINOPHEN
  8. MESALAMINE [Concomitant]
     Active Substance: MESALAMINE

REACTIONS (1)
  - Colitis ulcerative [Unknown]
